FAERS Safety Report 6804408-6 (Version None)
Quarter: 2010Q2

REPORT INFORMATION
  Report Type: 
  Country: None (occurrence: None)
  Receive Date: 20100628
  Receipt Date: 20070419
  Transmission Date: 20101027
  Serious: No
  Sender: FDA-Public Use
  Company Number: US-PFIZER INC-2007009317

PATIENT

DRUGS (2)
  1. GEODON [Suspect]
     Indication: SCHIZOPHRENIA
     Dates: start: 20060801
  2. SERTRALINE HCL [Suspect]

REACTIONS (2)
  - DRUG LEVEL DECREASED [None]
  - NIGHTMARE [None]
